FAERS Safety Report 7345843-X (Version None)
Quarter: 2011Q1

REPORT INFORMATION
  Report Type: 
  Country: None (occurrence: None)
  Receive Date: 20110311
  Receipt Date: 20110301
  Transmission Date: 20110831
  Serious: No
  Sender: FDA-Public Use
  Company Number: US-BIOGENIDEC-2010BI018500

PATIENT
  Age: 41 Year
  Sex: Male

DRUGS (2)
  1. TYSABRI [Suspect]
     Indication: MULTIPLE SCLEROSIS
     Route: 042
     Dates: start: 20080314, end: 20091201
  2. TYSABRI [Suspect]
     Route: 042
     Dates: start: 20100501

REACTIONS (4)
  - MULTIPLE SCLEROSIS RELAPSE [None]
  - PROTEIN URINE PRESENT [None]
  - MULTIPLE SCLEROSIS [None]
  - RENAL DISORDER [None]
